FAERS Safety Report 5804399-0 (Version None)
Quarter: 2008Q3

REPORT INFORMATION
  Report Type: 
  Country: None (occurrence: None)
  Receive Date: 20080707
  Receipt Date: 20080707
  Transmission Date: 20090109
  Serious: Yes (Life-Threatening, Other)
  Sender: FDA-Public Use
  Company Number: None

PATIENT
  Age: 59 Year
  Sex: Male
  Weight: 81.6475 kg

DRUGS (1)
  1. PHOSPHO SODA BOWEL PREP     FLEETS [Suspect]
     Indication: COLONOSCOPY
     Dosage: WHAT EVER LABEL SAID  PRIOR TO COLON STU  ONE USE
     Dates: start: 20060920, end: 20060920

REACTIONS (3)
  - ANAEMIA [None]
  - BLOOD PARATHYROID HORMONE INCREASED [None]
  - RENAL FAILURE CHRONIC [None]
